FAERS Safety Report 17645190 (Version 1)
Quarter: 2020Q2

REPORT INFORMATION
  Report Type: Spontaneous
  Country: US (occurrence: US)
  Receive Date: 20200408
  Receipt Date: 20200408
  Transmission Date: 20200713
  Serious: Yes (Life-Threatening, Hospitalization)
  Sender: FDA-Public Use
  Company Number: None

PATIENT
  Age: 67 Year
  Sex: Male
  Weight: 90 kg

DRUGS (10)
  1. VANCOMYCIN [Suspect]
     Active Substance: VANCOMYCIN
     Indication: INFECTION PROPHYLAXIS
     Dosage: ?          OTHER FREQUENCY:ONCE;?
     Route: 041
     Dates: start: 20191022, end: 20191022
  2. ROCURONIUM 50MG [Concomitant]
     Dates: start: 20191022, end: 20191022
  3. LIDOCAINE 100MG [Concomitant]
     Dates: start: 20191022, end: 20191022
  4. REMIFENTANIL 0.75MG [Concomitant]
     Dates: start: 20191022, end: 20191022
  5. ACETAMINOPHEN 1 GRAM [Concomitant]
     Dates: start: 20191022, end: 20191022
  6. PROPOFOL 250MG [Concomitant]
     Dates: start: 20191022, end: 20191022
  7. SUCCINYLCHOLINE 140MG [Concomitant]
     Dates: start: 20191022, end: 20191022
  8. MIDAZOLAM 4MG [Concomitant]
     Dates: start: 20191022, end: 20191022
  9. FENTANYL 100MCG [Concomitant]
     Dates: start: 20191022, end: 20191022
  10. GLYCOPYRROLATE 0.4MG [Concomitant]
     Dates: start: 20191022, end: 20191022

REACTIONS (1)
  - Anaphylactic reaction [None]

NARRATIVE: CASE EVENT DATE: 20191022
